FAERS Safety Report 6455801-5 (Version None)
Quarter: 2009Q4

REPORT INFORMATION
  Report Type: 
  Country: None (occurrence: None)
  Receive Date: 20091125
  Receipt Date: 20090819
  Transmission Date: 20100525
  Serious: No
  Sender: FDA-Public Use
  Company Number: US-ABBOTT-09P-163-0593581-00

PATIENT
  Sex: Female
  Weight: 97.61 kg

DRUGS (19)
  1. SIMCOR [Suspect]
     Indication: BLOOD CHOLESTEROL INCREASED
     Dosage: 500/20 MG
     Dates: start: 20090701, end: 20090817
  2. SIMCOR [Suspect]
     Indication: BLOOD TRIGLYCERIDES INCREASED
     Dosage: 1000/20 MG
     Dates: start: 20090818
  3. SIMCOR [Suspect]
     Indication: HIGH DENSITY LIPOPROTEIN DECREASED
  4. SIMCOR [Suspect]
     Indication: LOW DENSITY LIPOPROTEIN INCREASED
  5. GABAPENTIN [Concomitant]
     Indication: DIABETIC NEUROPATHY
  6. LOVAZA [Concomitant]
     Indication: BLOOD CHOLESTEROL INCREASED
  7. JANUMET [Concomitant]
     Indication: DIABETES MELLITUS
  8. TOPROL-XL [Concomitant]
     Indication: HYPERTENSION
  9. PLAVIX [Concomitant]
     Indication: ISCHAEMIC HEART DISEASE PROPHYLAXIS
  10. ASPIRIN [Concomitant]
     Indication: ISCHAEMIC HEART DISEASE PROPHYLAXIS
  11. BENICAR [Concomitant]
     Indication: HYPERTENSION
  12. SPIRONOLACTONE [Concomitant]
     Indication: OEDEMA PERIPHERAL
  13. TRILIPIX [Concomitant]
     Indication: BLOOD TRIGLYCERIDES INCREASED
  14. SYNTHROID [Concomitant]
     Indication: HYPOTHYROIDISM
  15. CLONAZEPAM [Concomitant]
     Indication: ANXIETY
  16. ZYPREXA [Concomitant]
     Indication: SCHIZOAFFECTIVE DISORDER
  17. EFFEXOR [Concomitant]
     Indication: DEPRESSION
  18. LANTUS [Concomitant]
     Indication: DIABETES MELLITUS
  19. HUMALOG [Concomitant]
     Indication: DIABETES MELLITUS

REACTIONS (2)
  - PARAESTHESIA [None]
  - PRURITUS [None]
